FAERS Safety Report 8168746-X (Version None)
Quarter: 2012Q1

REPORT INFORMATION
  Report Type: 
  Country: None (occurrence: None)
  Receive Date: 20120227
  Receipt Date: 20120223
  Transmission Date: 20120608
  Serious: No
  Sender: FDA-Public Use
  Company Number: US-PFIZER INC-2011035411

PATIENT
  Sex: Female

DRUGS (5)
  1. CELEXA [Suspect]
     Dosage: 40 MG, UNK
  2. OXYCONTIN [Suspect]
     Dosage: UNK
  3. OXYCODONE HYDROCHLORIDE [Suspect]
     Dosage: UNK
  4. LEVOTHYROXINE SODIUM [Suspect]
     Dosage: UNK
     Route: 048
  5. ATENOLOL [Suspect]
     Dosage: UNK

REACTIONS (1)
  - DRUG SCREEN POSITIVE [None]
